FAERS Safety Report 5925521-1 (Version None)
Quarter: 2008Q4

REPORT INFORMATION
  Report Type: 
  Country: None (occurrence: None)
  Receive Date: 20081021
  Receipt Date: 20081013
  Transmission Date: 20090506
  Serious: Yes (Other)
  Sender: FDA-Public Use
  Company Number: PHHY2008DE21634

PATIENT
  Sex: Female
  Weight: 54 kg

DRUGS (4)
  1. VOLTAREN [Suspect]
     Indication: SCIATICA
     Dosage: 1 X 50 MG
     Route: 048
  2. VOLTAREN [Suspect]
     Indication: VIRAL INFECTION
     Dosage: 2-3 X 50 MG
     Route: 048
  3. VOLTAREN [Suspect]
     Indication: SCIATICA
     Dosage: UNK
     Route: 061
  4. VOLTAREN [Suspect]
     Indication: VIRAL INFECTION

REACTIONS (1)
  - POLYNEUROPATHY [None]
